FAERS Safety Report 16400696 (Version 2)
Quarter: 2019Q3

REPORT INFORMATION
  Report Type: Report from Study
  Country: US (occurrence: US)
  Receive Date: 20190606
  Receipt Date: 20190702
  Transmission Date: 20191004
  Serious: Yes (Hospitalization)
  Sender: FDA-Public Use
  Company Number: US-ACTELION-A-US2019-186008

PATIENT
  Age: 77 Year
  Sex: Female

DRUGS (15)
  1. MULTIVITAMIN [Concomitant]
     Active Substance: VITAMINS
  2. TAMSULOSIN [Concomitant]
     Active Substance: TAMSULOSIN
  3. METFORMIN [Concomitant]
     Active Substance: METFORMIN HYDROCHLORIDE
  4. ELIQUIS [Concomitant]
     Active Substance: APIXABAN
  5. PRAMIPEXOLE. [Concomitant]
     Active Substance: PRAMIPEXOLE
  6. QUETIAPINE. [Concomitant]
     Active Substance: QUETIAPINE
  7. CARTIA XT [Concomitant]
     Active Substance: DILTIAZEM HYDROCHLORIDE
  8. TRIAZOLAM. [Concomitant]
     Active Substance: TRIAZOLAM
  9. VITAMIN B12 [Concomitant]
     Active Substance: CYANOCOBALAMIN
  10. FLECAINIDE [Concomitant]
     Active Substance: FLECAINIDE
  11. HYDROCHLOROTHIAZIDE. [Concomitant]
     Active Substance: HYDROCHLOROTHIAZIDE
  12. CARVEDILOL. [Concomitant]
     Active Substance: CARVEDILOL
  13. DULOXETINE. [Concomitant]
     Active Substance: DULOXETINE
  14. OPSUMIT [Suspect]
     Active Substance: MACITENTAN
     Indication: PULMONARY ARTERIAL HYPERTENSION
     Dosage: 10 MG, QD
     Route: 048
     Dates: start: 20181218
  15. MIRTAZAPINE. [Concomitant]
     Active Substance: MIRTAZAPINE

REACTIONS (3)
  - Intestinal haemorrhage [Unknown]
  - Dyspnoea [Not Recovered/Not Resolved]
  - Product dose omission [Not Recovered/Not Resolved]

NARRATIVE: CASE EVENT DATE: 20190126
